FAERS Safety Report 7965976-4 (Version None)
Quarter: 2011Q4

REPORT INFORMATION
  Report Type: 
  Country: None (occurrence: None)
  Receive Date: 20111208
  Receipt Date: 20111128
  Transmission Date: 20120403
  Serious: Yes (Hospitalization)
  Sender: FDA-Public Use
  Company Number: DE-JNJFOC-20111112578

PATIENT
  Age: 48 Year
  Sex: Male
  Weight: 80 kg

DRUGS (3)
  1. REMICADE [Suspect]
     Indication: CROHN'S DISEASE
     Route: 042
     Dates: start: 20110325
  2. REMICADE [Suspect]
     Route: 042
     Dates: start: 20110211
  3. REMICADE [Suspect]
     Route: 042
     Dates: start: 20110513

REACTIONS (2)
  - APPENDICITIS [None]
  - INFECTIOUS PERITONITIS [None]
